FAERS Safety Report 24133316 (Version 1)
Quarter: 2024Q3

REPORT INFORMATION
  Report Type: Spontaneous
  Country: US (occurrence: None)
  Receive Date: 20240724
  Receipt Date: 20240724
  Transmission Date: 20241017
  Serious: Yes (Hospitalization, Other)
  Sender: ASTRAZENECA
  Company Number: 2024A165819

PATIENT
  Age: 63 Year
  Sex: Female
  Weight: 68 kg

DRUGS (21)
  1. FARXIGA [Interacting]
     Active Substance: DAPAGLIFLOZIN PROPANEDIOL
     Indication: Product used for unknown indication
     Route: 048
  2. OMEPRAZOLE [Interacting]
     Active Substance: OMEPRAZOLE
  3. MIFEPRISTONE [Interacting]
     Active Substance: MIFEPRISTONE
     Indication: Cushing^s syndrome
     Route: 048
     Dates: start: 20231212
  4. ACETAMINOPHEN\CODEINE PHOSPHATE [Concomitant]
     Active Substance: ACETAMINOPHEN\CODEINE PHOSPHATE
  5. KERENDIA [Concomitant]
     Active Substance: FINERENONE
  6. TORSEMIDE [Concomitant]
     Active Substance: TORSEMIDE
  7. TIZANIDINE [Concomitant]
     Active Substance: TIZANIDINE
  8. ROPINIROLE [Concomitant]
     Active Substance: ROPINIROLE
  9. POTASSIUM CHLORIDE [Concomitant]
     Active Substance: POTASSIUM CHLORIDE
  10. OZEMPIC [Concomitant]
     Active Substance: SEMAGLUTIDE
  11. NOVOLOG [Concomitant]
     Active Substance: INSULIN ASPART
  12. LEVEMIR [Concomitant]
     Active Substance: INSULIN DETEMIR
  13. GABAPENTIN [Concomitant]
     Active Substance: GABAPENTIN
  14. EZETIMIBE [Concomitant]
     Active Substance: EZETIMIBE
  15. VITAMIN D [Concomitant]
     Active Substance: VITAMIN D NOS
  16. ENTRESTO [Concomitant]
     Active Substance: SACUBITRIL\VALSARTAN
  17. CLOPIDOGREL [Concomitant]
     Active Substance: CLOPIDOGREL BISULFATE
  18. CETIRIZINE HYDROCHLORIDE [Concomitant]
     Active Substance: CETIRIZINE HYDROCHLORIDE
  19. CARVEDILOL [Concomitant]
     Active Substance: CARVEDILOL
  20. ATORVASTATIN CALCIUM [Concomitant]
     Active Substance: ATORVASTATIN CALCIUM
  21. ALLEGRA [Concomitant]
     Active Substance: FEXOFENADINE HYDROCHLORIDE

REACTIONS (5)
  - Pelvic fracture [Not Recovered/Not Resolved]
  - Wrist fracture [Not Recovered/Not Resolved]
  - Road traffic accident [Recovered/Resolved]
  - Hypertension [Unknown]
  - Drug interaction [Unknown]

NARRATIVE: CASE EVENT DATE: 20240429
